FAERS Safety Report 19813046 (Version 1)
Quarter: 2021Q3

REPORT INFORMATION
  Report Type: Spontaneous
  Country: US (occurrence: US)
  Receive Date: 20210909
  Receipt Date: 20210909
  Transmission Date: 20211014
  Serious: Yes (Life-Threatening, Disabling, Other)
  Sender: FDA-Public Use
  Company Number: None

PATIENT
  Age: 60 Year
  Sex: Female
  Weight: 106.59 kg

DRUGS (2)
  1. HYDROMORPHONE [Suspect]
     Active Substance: HYDROMORPHONE
  2. FLOWONIX PROMETRA PAIN PUMP [Suspect]
     Active Substance: DEVICE

REACTIONS (6)
  - Mental impairment [None]
  - Fatigue [None]
  - Somnolence [None]
  - Nausea [None]
  - Vomiting [None]
  - Drug dose omission by device [None]

NARRATIVE: CASE EVENT DATE: 20210827
